FAERS Safety Report 11323913 (Version 1)
Quarter: 2015Q3

REPORT INFORMATION
  Report Type: Spontaneous
  Country: CA (occurrence: CA)
  Receive Date: 20150730
  Receipt Date: 20150730
  Transmission Date: 20151125
  Serious: Yes (Hospitalization)
  Sender: FDA-Public Use
  Company Number: CA-009507513-1507CAN008871

PATIENT
  Age: 62 Year
  Sex: Male

DRUGS (1)
  1. TEMODAL [Suspect]
     Active Substance: TEMOZOLOMIDE
     Indication: GLIOBLASTOMA MULTIFORME
     Dosage: 145 MG DAILY (OD X 42 DAYS)
     Route: 048
     Dates: start: 201507

REACTIONS (2)
  - Blood test abnormal [Unknown]
  - Liver disorder [Unknown]

NARRATIVE: CASE EVENT DATE: 201507
